FAERS Safety Report 19716646 (Version 1)
Quarter: 2021Q3

REPORT INFORMATION
  Report Type: Spontaneous
  Country: DE (occurrence: DE)
  Receive Date: 20210818
  Receipt Date: 20210818
  Transmission Date: 20211014
  Serious: Yes (Hospitalization, Other)
  Sender: FDA-Public Use
  Company Number: DE-TEVA-2021-DE-1941906

PATIENT
  Age: 86 Year
  Sex: Male
  Weight: 60 kg

DRUGS (5)
  1. ACETYLSALICYLSAURE [Suspect]
     Active Substance: ASPIRIN
     Dosage: 100 MILLIGRAM DAILY;  0?0?1?0
     Route: 065
  2. DIGOXIN. [Concomitant]
     Active Substance: DIGOXIN
     Dosage: .5 DOSAGE FORMS DAILY; 0.25 MG, 0.5?0?0?0
  3. SPIRONOLACTON [Concomitant]
     Active Substance: SPIRONOLACTONE
     Dosage: 50 MILLIGRAM DAILY; 50 MG, 1?0?0?0
  4. PREDNISOLON [Suspect]
     Active Substance: PREDNISOLONE
     Dosage: 5 MILLIGRAM DAILY; 1?0?0?0
     Route: 065
  5. TORASEMID [Concomitant]
     Active Substance: TORSEMIDE
     Dosage: 10 MG, 2?1?0?0, 30MG

REACTIONS (11)
  - Hepatic cirrhosis [Unknown]
  - Dyspnoea [Unknown]
  - Conduction disorder [Unknown]
  - Oedema peripheral [Unknown]
  - Autoimmune hepatitis [Unknown]
  - Atrial flutter [Unknown]
  - Anaemia [Unknown]
  - Abdominal distension [Unknown]
  - General physical health deterioration [Unknown]
  - Arrhythmia [Unknown]
  - Electrocardiogram abnormal [Unknown]
